FAERS Safety Report 15051546 (Version 2)
Quarter: 2018Q2

REPORT INFORMATION
  Report Type: Report from Study
  Country: CO (occurrence: CO)
  Receive Date: 20180622
  Receipt Date: 20180622
  Transmission Date: 20180711
  Serious: Yes (Death, Hospitalization, Other)
  Sender: FDA-Public Use
  Company Number: CO-JNJFOC-20180602775

PATIENT
  Age: 68 Year
  Sex: Male
  Weight: 65 kg

DRUGS (1)
  1. IMBRUVICA [Suspect]
     Active Substance: IBRUTINIB
     Indication: MANTLE CELL LYMPHOMA
     Route: 048
     Dates: start: 20160815, end: 20180528

REACTIONS (9)
  - Renal disorder [Unknown]
  - Neoplasm malignant [Fatal]
  - Seizure [Unknown]
  - Hospitalisation [Unknown]
  - Vomiting [Unknown]
  - Asthenia [Unknown]
  - Dementia Alzheimer^s type [Unknown]
  - Aphasia [Unknown]
  - Blood sodium decreased [Unknown]

NARRATIVE: CASE EVENT DATE: 20180505
